APPROVED DRUG PRODUCT: ERGOLOID MESYLATES
Active Ingredient: ERGOLOID MESYLATES
Strength: 1MG
Dosage Form/Route: TABLET;ORAL
Application: A081113 | Product #001
Applicant: SUN PHARMACEUTICAL INDUSTRIES INC
Approved: Oct 31, 1991 | RLD: No | RS: No | Type: DISCN